FAERS Safety Report 20505467 (Version 2)
Quarter: 2022Q1

REPORT INFORMATION
  Report Type: Report from Study
  Country: US (occurrence: US)
  Receive Date: 20220223
  Receipt Date: 20220301
  Transmission Date: 20220424
  Serious: No
  Sender: FDA-Public Use
  Company Number: US-KYOWAKIRIN-2022BKK002284

PATIENT

DRUGS (1)
  1. CRYSVITA [Suspect]
     Active Substance: BUROSUMAB-TWZA
     Indication: Hypophosphataemic osteomalacia
     Dosage: 60 MG, EVERY 28 DAYS
     Route: 058
     Dates: start: 20210621

REACTIONS (2)
  - Injection site pain [Unknown]
  - Constipation [Not Recovered/Not Resolved]
